FAERS Safety Report 22736114 (Version 6)
Quarter: 2024Q2

REPORT INFORMATION
  Report Type: Spontaneous
  Country: US (occurrence: US)
  Receive Date: 20230721
  Receipt Date: 20240425
  Transmission Date: 20240716
  Serious: No
  Sender: FDA-Public Use
  Company Number: US-BIOVITRUM-2023-US-012629

PATIENT
  Age: 7 Year
  Sex: Female

DRUGS (2)
  1. KINERET [Suspect]
     Active Substance: ANAKINRA
     Indication: Mucopolysaccharidosis III
     Dosage: 100 MG DAILY
     Route: 058
  2. KINERET [Suspect]
     Active Substance: ANAKINRA
     Dosage: 100 MG DAILY
     Route: 058
     Dates: start: 20230623

REACTIONS (7)
  - Off label use [Unknown]
  - Pharyngitis [Unknown]
  - Vomiting [Unknown]
  - Diarrhoea [Unknown]
  - Injection site mass [Unknown]
  - Cough [Unknown]
  - Intentional dose omission [Unknown]

NARRATIVE: CASE EVENT DATE: 20230623
